FAERS Safety Report 12522568 (Version 2)
Quarter: 2016Q3

REPORT INFORMATION
  Report Type: Report from Study
  Country: US (occurrence: US)
  Receive Date: 20160701
  Receipt Date: 20160719
  Transmission Date: 20161109
  Serious: Yes (Death, Hospitalization)
  Sender: FDA-Public Use
  Company Number: US-ACTELION-A-US2016-135727

PATIENT
  Age: 62 Year
  Sex: Male

DRUGS (17)
  1. OPSUMIT [Suspect]
     Active Substance: MACITENTAN
     Indication: PULMONARY ARTERIAL HYPERTENSION
     Dosage: 10 MG, QD
     Route: 048
  2. RIVAROXABAN [Concomitant]
     Active Substance: RIVAROXABAN
  3. REVATIO [Concomitant]
     Active Substance: SILDENAFIL CITRATE
  4. MINOXIDIL. [Concomitant]
     Active Substance: MINOXIDIL
  5. XARELTO [Concomitant]
     Active Substance: RIVAROXABAN
  6. TEMAZEPAM. [Concomitant]
     Active Substance: TEMAZEPAM
  7. VALSARTAN. [Concomitant]
     Active Substance: VALSARTAN
  8. CLONIDINE HCL [Concomitant]
     Active Substance: CLONIDINE HYDROCHLORIDE
  9. FUROSEMIDE. [Concomitant]
     Active Substance: FUROSEMIDE
  10. FLUTICASONE PROPIONATE. [Concomitant]
     Active Substance: FLUTICASONE PROPIONATE
  11. OMEPRAZOLE. [Concomitant]
     Active Substance: OMEPRAZOLE
  12. REPAGLINIDE. [Concomitant]
     Active Substance: REPAGLINIDE
  13. POTASSIUM [Concomitant]
     Active Substance: POTASSIUM
  14. POTASSIUM CHLORIDE. [Concomitant]
     Active Substance: POTASSIUM CHLORIDE
  15. GABAPENTIN. [Concomitant]
     Active Substance: GABAPENTIN
  16. DILTIAZEM. [Concomitant]
     Active Substance: DILTIAZEM
  17. DILTIAZEM HCL [Concomitant]
     Active Substance: DILTIAZEM HYDROCHLORIDE

REACTIONS (5)
  - Death [Fatal]
  - Pulmonary arterial hypertension [Not Recovered/Not Resolved]
  - Palpitations [Not Recovered/Not Resolved]
  - Dyspnoea [Unknown]
  - Coma [Not Recovered/Not Resolved]

NARRATIVE: CASE EVENT DATE: 20160430
